FAERS Safety Report 14257785 (Version 1)
Quarter: 2017Q4

REPORT INFORMATION
  Report Type: Report from Study
  Country: ES (occurrence: ES)
  Receive Date: 20171207
  Receipt Date: 20171207
  Transmission Date: 20180321
  Serious: Yes (Other)
  Sender: FDA-Public Use
  Company Number: ES-ROCHE-2034137

PATIENT

DRUGS (1)
  1. RITUXIMAB. [Suspect]
     Active Substance: RITUXIMAB
     Indication: MULTIPLE SCLEROSIS
     Route: 065

REACTIONS (6)
  - Infusion related reaction [Unknown]
  - Anaphylactic reaction [Unknown]
  - Intentional product use issue [Unknown]
  - Off label use [Unknown]
  - Neutropenia [Unknown]
  - Deep vein thrombosis [Unknown]
